FAERS Safety Report 22638561 (Version 1)
Quarter: 2023Q2

REPORT INFORMATION
  Report Type: Spontaneous
  Country: US (occurrence: None)
  Receive Date: 20230623
  Receipt Date: 20230623
  Transmission Date: 20230721
  Serious: Yes (Disabling)
  Sender: FDA-Public Use
  Company Number: None

PATIENT
  Age: 12 Year
  Sex: Female
  Weight: 41.4 kg

DRUGS (4)
  1. LEVAQUIN [Suspect]
     Active Substance: LEVOFLOXACIN
     Indication: Wound infection
     Dosage: OTHER QUANTITY : 1 CAPSULE(S);?FREQUENCY : DAILY;?
     Route: 048
     Dates: start: 20230505, end: 20230511
  2. MELOXICAM [Concomitant]
     Active Substance: MELOXICAM
  3. PEPCID [Concomitant]
     Active Substance: FAMOTIDINE
  4. UNSPECIFIED INGREDIENT [Concomitant]
     Active Substance: UNSPECIFIED INGREDIENT

REACTIONS (19)
  - Arthralgia [None]
  - Arthralgia [None]
  - Arthralgia [None]
  - Arthralgia [None]
  - Arthralgia [None]
  - Arthralgia [None]
  - Arthralgia [None]
  - Pain in extremity [None]
  - Vomiting [None]
  - Abdominal pain upper [None]
  - Rash [None]
  - Nausea [None]
  - Vertigo [None]
  - Malaise [None]
  - Oesophageal pain [None]
  - Spinal pain [None]
  - Pain in jaw [None]
  - Neck pain [None]
  - Depressed mood [None]

NARRATIVE: CASE EVENT DATE: 20230505
